FAERS Safety Report 8406728 (Version 2)
Quarter: 2012Q4

REPORT INFORMATION
  Report Type: Report from Study
  Country: PL (occurrence: PL)
  Receive Date: 20120215
  Receipt Date: 20121022
  Transmission Date: 20130627
  Serious: Yes (Other)
  Sender: FDA-Public Use
  Company Number: PL-ROCHE-1026007

PATIENT
  Age: 59 Year
  Sex: Female
  Weight: 87.3 kg

DRUGS (4)
  1. VEMURAFENIB [Suspect]
     Indication: MALIGNANT MELANOMA
     Dosage: last dose prior to SAE 13 dec 2011.
     Route: 048
     Dates: start: 20111018
  2. RAMIPRIL [Concomitant]
     Route: 065
     Dates: start: 1995
  3. ACIDUM ACETYLSALICYLICUM [Concomitant]
     Route: 065
     Dates: start: 1995
  4. SIMVASTATIN [Concomitant]
     Dosage: reported as ^simvastatinum^
     Route: 065
     Dates: start: 1995

REACTIONS (1)
  - Acanthosis [Recovered/Resolved]
